FAERS Safety Report 11912215 (Version 3)
Quarter: 2016Q1

REPORT INFORMATION
  Report Type: Report from Study
  Country: US (occurrence: US)
  Receive Date: 20160112
  Receipt Date: 20160210
  Transmission Date: 20160526
  Serious: Yes (Death, Hospitalization)
  Sender: FDA-Public Use
  Company Number: US-CELGENE-USA-2016011480

PATIENT
  Age: 73 Year
  Sex: Female

DRUGS (10)
  1. ABRAXANE [Suspect]
     Active Substance: PACLITAXEL
     Indication: NON-SMALL CELL LUNG CANCER
     Dosage: 180 MILLIGRAM
     Route: 041
     Dates: start: 20151230
  2. PEMETREXED [Suspect]
     Active Substance: PEMETREXED
     Indication: NON-SMALL CELL LUNG CANCER
     Route: 041
     Dates: end: 20151230
  3. COMPAZINE [Concomitant]
     Active Substance: PROCHLORPERAZINE MALEATE
     Indication: NAUSEA
     Route: 065
  4. GUIFENESIN/CODEINE [Concomitant]
     Indication: COUGH
     Dosage: 1200 MILLIGRAM
     Route: 065
     Dates: start: 20151112, end: 20160105
  5. MPDL3280A (ATEZOLIZUMAB) [Suspect]
     Active Substance: ATEZOLIZUMAB
     Indication: NON-SMALL CELL LUNG CANCER
     Route: 041
     Dates: start: 20151230
  6. ERLOTINIB [Suspect]
     Active Substance: ERLOTINIB
     Indication: NON-SMALL CELL LUNG CANCER
     Route: 048
     Dates: end: 20151230
  7. CARBOPLATIN. [Suspect]
     Active Substance: CARBOPLATIN
     Indication: NON-SMALL CELL LUNG CANCER
     Route: 041
     Dates: start: 20151230
  8. LEVAQUIN [Concomitant]
     Active Substance: LEVOFLOXACIN
     Indication: NAUSEA
     Route: 065
  9. TYLENOL [Concomitant]
     Active Substance: ACETAMINOPHEN
     Indication: PAIN
     Route: 065
     Dates: start: 20151101, end: 20160106
  10. LEVOTHYROXINE. [Concomitant]
     Active Substance: LEVOTHYROXINE
     Indication: HYPOTHYROIDISM
     Route: 065
     Dates: start: 20020416, end: 20160105

REACTIONS (4)
  - Dizziness [Fatal]
  - Confusional state [Fatal]
  - Cardiac arrest [Fatal]
  - Sepsis [Fatal]

NARRATIVE: CASE EVENT DATE: 20160103
